FAERS Safety Report 5162271-6 (Version None)
Quarter: 2006Q4

REPORT INFORMATION
  Report Type: 
  Country: None (occurrence: None)
  Receive Date: 20061121
  Receipt Date: 20061115
  Transmission Date: 20070319
  Serious: Yes (Hospitalization, Other)
  Sender: FDA-Public Use
  Company Number: 2006-08-0604

PATIENT
  Age: 41 Year
  Sex: Male
  Weight: 99.7913 kg

DRUGS (2)
  1. PEG-INTRON [Suspect]
     Indication: HEPATITIS C
     Dosage: QW
     Dates: start: 20030601, end: 20041201
  2. RIBAVIRIN [Suspect]
     Indication: HEPATITIS C
     Dosage: PO
     Route: 048
     Dates: start: 20030601, end: 20041201

REACTIONS (14)
  - ARTHRALGIA [None]
  - ASTHENIA [None]
  - DEPRESSION [None]
  - DIVERTICULITIS [None]
  - DRY SKIN [None]
  - DYSURIA [None]
  - HAEMATURIA [None]
  - IMPAIRED HEALING [None]
  - INJECTION SITE ABSCESS [None]
  - LACERATION [None]
  - MIGRAINE [None]
  - MYALGIA [None]
  - SCRATCH [None]
  - SKIN EXFOLIATION [None]
